FAERS Safety Report 10235012 (Version 2)
Quarter: 2014Q3

REPORT INFORMATION
  Report Type: Spontaneous
  Country: US (occurrence: None)
  Receive Date: 20140611
  Receipt Date: 20140716
  Transmission Date: 20150326
  Serious: Yes (Death)
  Sender: FDA-Public Use
  Company Number: 2014-US-007119

PATIENT
  Age: 44 Year
  Sex: Female

DRUGS (8)
  1. PRIALT [Suspect]
     Active Substance: ZICONOTIDE ACETATE
     Indication: CHEMOTHERAPY
     Route: 037
  2. DILAUDID [Suspect]
     Active Substance: HYDROMORPHONE HYDROCHLORIDE
     Indication: CHEMOTHERAPY
     Route: 037
  3. BUPIVACAINE HYDROCHLORIDE. [Suspect]
     Active Substance: BUPIVACAINE HYDROCHLORIDE
     Indication: CHEMOTHERAPY
     Route: 037
  4. DILAUDID [Suspect]
     Active Substance: HYDROMORPHONE HYDROCHLORIDE
     Indication: NEOPLASM MALIGNANT
     Route: 037
  5. BUPIVACAINE HYDROCHLORIDE. [Suspect]
     Active Substance: BUPIVACAINE HYDROCHLORIDE
     Indication: NEOPLASM MALIGNANT
     Route: 037
  6. PRIALT [Suspect]
     Active Substance: ZICONOTIDE ACETATE
     Indication: NEOPLASM MALIGNANT
     Route: 037
  7. CLONIDINE. [Suspect]
     Active Substance: CLONIDINE
     Indication: CHEMOTHERAPY
     Route: 037
  8. CLONIDINE. [Suspect]
     Active Substance: CLONIDINE
     Indication: NEOPLASM MALIGNANT
     Route: 037

REACTIONS (1)
  - Neoplasm malignant [None]

NARRATIVE: CASE EVENT DATE: 20140511
